FAERS Safety Report 5468791-9 (Version None)
Quarter: 2007Q3

REPORT INFORMATION
  Report Type: 
  Country: None (occurrence: None)
  Receive Date: 20070926
  Receipt Date: 20070920
  Transmission Date: 20080115
  Serious: Yes (Other)
  Sender: FDA-Public Use
  Company Number: US-ROXANE LABORATORIES, INC-2007-BP-21384RO

PATIENT
  Age: 38 Year
  Sex: Female

DRUGS (8)
  1. NAPROXEN [Suspect]
     Indication: ANALGESIA
     Route: 048
  2. ACETAMINOPHEN [Suspect]
     Indication: ANALGESIA
     Route: 048
  3. DIPHENHYDRAMINE HYDROCHLOIDE [Concomitant]
  4. CONJUGATED ESTROGENS [Concomitant]
  5. METOCLOPRAMIDE [Concomitant]
  6. FENOFIBRATE [Concomitant]
  7. VENLAFAXINE HCL [Concomitant]
  8. PANTOPRAZOLE SODIUM [Concomitant]

REACTIONS (4)
  - HYDRONEPHROSIS [None]
  - NEPHRECTOMY [None]
  - NEPHROPATHY TOXIC [None]
  - RENAL ATROPHY [None]
